FAERS Safety Report 9733351 (Version 2)
Quarter: 2014Q1

REPORT INFORMATION
  Report Type: Spontaneous
  Country: US (occurrence: US)
  Receive Date: 20131205
  Receipt Date: 20140122
  Transmission Date: 20141002
  Serious: Yes (Other)
  Sender: FDA-Public Use
  Company Number: US-PFIZER INC-2013345862

PATIENT
  Age: 80 Year
  Sex: Female
  Weight: 56.23 kg

DRUGS (3)
  1. ADVIL [Suspect]
     Indication: HEADACHE
     Dosage: UNK, AS NEEDED
     Route: 048
  2. ADVIL [Suspect]
     Indication: LIGAMENT SPRAIN
  3. ADVIL [Suspect]
     Indication: ARTHRALGIA

REACTIONS (1)
  - Myocardial infarction [Unknown]
